FAERS Safety Report 8839254 (Version 2)
Quarter: 2012Q4

REPORT INFORMATION
  Report Type: Report from Study
  Country: CA (occurrence: CA)
  Receive Date: 20121015
  Receipt Date: 20121213
  Transmission Date: 20130627
  Serious: Yes (Other)
  Sender: FDA-Public Use
  Company Number: CA-JNJFOC-20121005568

PATIENT
  Age: 67 Year
  Sex: Male
  Weight: 77.5 kg

DRUGS (13)
  1. METFORMIN [Concomitant]
     Route: 065
  2. RAMIPRIL [Concomitant]
     Route: 065
  3. VITAMIN D [Concomitant]
     Route: 065
  4. REMICADE [Suspect]
     Indication: RHEUMATOID ARTHRITIS
     Route: 042
     Dates: start: 20080328
  5. LIPIDIL [Concomitant]
     Route: 065
  6. METOPROLOL [Concomitant]
     Route: 065
  7. HYDROXYCHLOROQUINE [Concomitant]
     Route: 065
  8. CELEBREX [Concomitant]
     Route: 065
  9. ALTACE [Concomitant]
     Route: 065
  10. FOLIC ACID [Concomitant]
     Route: 065
  11. METHOTREXATE [Concomitant]
     Route: 065
  12. ACETYLSALICYLIC ACID [Concomitant]
     Route: 065
  13. TYLENOL [Concomitant]
     Route: 065

REACTIONS (2)
  - Bursa injury [Not Recovered/Not Resolved]
  - Elbow operation [Unknown]
